FAERS Safety Report 18308452 (Version 2)
Quarter: 2020Q4

REPORT INFORMATION
  Report Type: Report from Study
  Country: PK (occurrence: PK)
  Receive Date: 20200924
  Receipt Date: 20201006
  Transmission Date: 20210113
  Serious: Yes (Other)
  Sender: FDA-Public Use
  Company Number: PHHY2019PK146697

PATIENT
  Age: 27 Year
  Sex: Male

DRUGS (4)
  1. MYFORTIC [Suspect]
     Active Substance: MYCOPHENOLATE SODIUM
     Dosage: 1 DF, BID (360 MG)
     Route: 048
     Dates: start: 20190622, end: 20191125
  2. TACROSAN [Suspect]
     Active Substance: TACROLIMUS
     Indication: PROPHYLAXIS AGAINST TRANSPLANT REJECTION
     Dosage: 3 DF, BID (1 MG)
     Route: 048
     Dates: start: 20190622, end: 20191125
  3. MYFORTIC [Suspect]
     Active Substance: MYCOPHENOLATE SODIUM
     Indication: RENAL TRANSPLANT
     Dosage: 0.5 DF, BID (360 MG)
     Route: 048
     Dates: start: 20180101
  4. TACROSAN [Suspect]
     Active Substance: TACROLIMUS
     Indication: RENAL TRANSPLANT
     Dosage: 3 DF, BID (1 MG)
     Route: 048
     Dates: start: 20180101

REACTIONS (9)
  - Product prescribing error [Not Recovered/Not Resolved]
  - Oedema [Unknown]
  - Blood creatinine increased [Recovered/Resolved]
  - Wrong technique in product usage process [Not Recovered/Not Resolved]
  - Urine output decreased [Unknown]
  - Acute kidney injury [Recovered/Resolved]
  - Pyrexia [Unknown]
  - Blood creatinine increased [Unknown]
  - Lethargy [Unknown]

NARRATIVE: CASE EVENT DATE: 20180101
